FAERS Safety Report 19030068 (Version 1)
Quarter: 2021Q1

REPORT INFORMATION
  Report Type: Spontaneous
  Country: TR (occurrence: TR)
  Receive Date: 20210319
  Receipt Date: 20210319
  Transmission Date: 20210420
  Serious: Yes (Other)
  Sender: FDA-Public Use
  Company Number: TR-SUN PHARMACEUTICAL INDUSTRIES LTD-2021RR-286645

PATIENT
  Age: 16 Year
  Sex: Female

DRUGS (4)
  1. BIPERIDENE [Suspect]
     Active Substance: BIPERIDEN
     Indication: AGITATION
     Dosage: 5 MILLIGRAM, DAILY, AS NEEDED
     Route: 030
  2. LORAZEPAM. [Suspect]
     Active Substance: LORAZEPAM
     Indication: AGITATION
     Dosage: 1 MILLIGRAM, DAILY
     Route: 048
  3. LORAZEPAM. [Suspect]
     Active Substance: LORAZEPAM
     Indication: PSYCHOMOTOR HYPERACTIVITY
  4. HALOPERIDOL. [Suspect]
     Active Substance: HALOPERIDOL
     Indication: AGITATION
     Dosage: 10 MILLIGRAM, DAILY, AS NEEDED
     Route: 030

REACTIONS (1)
  - Drug ineffective [Unknown]
